FAERS Safety Report 25505948 (Version 2)
Quarter: 2025Q3

REPORT INFORMATION
  Report Type: Spontaneous
  Country: EU (occurrence: EU)
  Receive Date: 20250702
  Receipt Date: 20250708
  Transmission Date: 20251020
  Serious: Yes (Death, Other)
  Sender: SANDOZ
  Company Number: EU-NOVPHSZ-PHHY2019FR122317

PATIENT
  Age: 66 Year
  Sex: Male
  Weight: 100 kg

DRUGS (3)
  1. CYCLOPHOSPHAMIDE [Suspect]
     Active Substance: CYCLOPHOSPHAMIDE
     Indication: B-cell depletion therapy
     Route: 042
     Dates: start: 20190501, end: 20190502
  2. FLUDARABINE [Suspect]
     Active Substance: FLUDARABINE PHOSPHATE
     Indication: B-cell depletion therapy
     Route: 042
     Dates: start: 20190501, end: 20190503
  3. YESCARTA [Suspect]
     Active Substance: AXICABTAGENE CILOLEUCEL
     Indication: Richter^s syndrome
     Route: 042
     Dates: start: 20190506, end: 20190506

REACTIONS (5)
  - Death [Fatal]
  - Cytokine release syndrome [Recovered/Resolved]
  - Condition aggravated [Recovered/Resolved]
  - Immune effector cell-associated neurotoxicity syndrome [Recovered/Resolved]
  - Bone marrow failure [Recovered/Resolved]

NARRATIVE: CASE EVENT DATE: 20190506
